FAERS Safety Report 19139262 (Version 1)
Quarter: 2021Q2

REPORT INFORMATION
  Report Type: Spontaneous
  Country: US (occurrence: US)
  Receive Date: 20210414
  Receipt Date: 20210414
  Transmission Date: 20210717
  Serious: Yes (Hospitalization, Other)
  Sender: FDA-Public Use
  Company Number: None

PATIENT
  Age: 73 Year
  Sex: Female

DRUGS (17)
  1. BENZONATATE. [Concomitant]
     Active Substance: BENZONATATE
  2. DYMETHYL FUMARATE [Suspect]
     Active Substance: DIMETHYL FUMARATE
     Indication: MULTIPLE SCLEROSIS
     Route: 048
     Dates: start: 20200920
  3. ESCITALOPRAM [Concomitant]
     Active Substance: ESCITALOPRAM OXALATE
  4. FLAXSEED [Concomitant]
     Active Substance: FLAX SEED
  5. AMPYRA [Concomitant]
     Active Substance: DALFAMPRIDINE
  6. AZELASTINE. [Concomitant]
     Active Substance: AZELASTINE HYDROCHLORIDE
  7. CALCIUM/D [Concomitant]
  8. FISH OIL [Concomitant]
     Active Substance: FISH OIL
  9. GLUCOS/CHOND [Concomitant]
  10. TOVIAZ [Concomitant]
     Active Substance: FESOTERODINE FUMARATE
  11. VITAMIN E [Concomitant]
     Active Substance: .ALPHA.-TOCOPHEROL
  12. BACLOFEN. [Concomitant]
     Active Substance: BACLOFEN
  13. IPARATOPIUM [Concomitant]
  14. FLUCONAZOLE. [Concomitant]
     Active Substance: FLUCONAZOLE
  15. IBUPROFEN. [Concomitant]
     Active Substance: IBUPROFEN
  16. GABAPENTIN. [Concomitant]
     Active Substance: GABAPENTIN
  17. OFLOXACIN. [Concomitant]
     Active Substance: OFLOXACIN

REACTIONS (3)
  - Muscular weakness [None]
  - Heart rate decreased [None]
  - Fall [None]

NARRATIVE: CASE EVENT DATE: 20210318
